FAERS Safety Report 5401373-3 (Version None)
Quarter: 2007Q3

REPORT INFORMATION
  Report Type: 
  Country: None (occurrence: None)
  Receive Date: 20070731
  Receipt Date: 20070731
  Transmission Date: 20080115
  Serious: Yes (Life-Threatening)
  Sender: FDA-Public Use
  Company Number: B0478604A

PATIENT
  Age: 73 Year
  Sex: Female
  Weight: 55 kg

DRUGS (7)
  1. ARIXTRA [Suspect]
     Indication: THROMBOSIS PROPHYLAXIS
     Dosage: 2.5MG PER DAY
     Route: 058
     Dates: start: 20070625, end: 20070628
  2. CEFAZOLIN SODIUM [Concomitant]
     Dosage: 2G PER DAY
     Route: 042
     Dates: start: 20070625, end: 20070630
  3. SOLDEM 3A [Concomitant]
     Dosage: 500ML PER DAY
     Route: 042
     Dates: start: 20070625, end: 20070626
  4. GLUCOSE [Concomitant]
     Dosage: 1000ML PER DAY
     Route: 042
     Dates: start: 20070629, end: 20070630
  5. HUMULIN 70/30 [Concomitant]
     Route: 042
     Dates: start: 20070629, end: 20070630
  6. SULBACTAM SODIUM [Concomitant]
     Dosage: 1G PER DAY
     Route: 042
     Dates: start: 20070630, end: 20070702
  7. SEISHOKU [Concomitant]
     Dosage: 200ML PER DAY
     Route: 042
     Dates: start: 20070625, end: 20070702

REACTIONS (5)
  - BLOOD PRESSURE DECREASED [None]
  - HAEMOGLOBIN DECREASED [None]
  - HAEMORRHAGE [None]
  - SHOCK HAEMORRHAGIC [None]
  - URINE OUTPUT DECREASED [None]
